FAERS Safety Report 18491248 (Version 1)
Quarter: 2020Q4

REPORT INFORMATION
  Report Type: Spontaneous
  Country: US (occurrence: US)
  Receive Date: 20201111
  Receipt Date: 20201111
  Transmission Date: 20210114
  Serious: Yes (Life-Threatening)
  Sender: FDA-Public Use
  Company Number: None

PATIENT
  Age: 45 Year
  Sex: Female
  Weight: 69.3 kg

DRUGS (3)
  1. NICOTINE MINI [Suspect]
     Active Substance: NICOTINE
     Indication: EX-TOBACCO USER
     Route: 002
     Dates: start: 20201020, end: 20201028
  2. FLU VACCINE [Concomitant]
     Active Substance: INFLUENZA VIRUS VACCINE
     Dates: start: 20201027, end: 20201027
  3. NICODERM CQ [Suspect]
     Active Substance: NICOTINE
     Indication: EX-TOBACCO USER
     Route: 062
     Dates: start: 20201020, end: 20201107

REACTIONS (8)
  - Gingival swelling [None]
  - Periorbital swelling [None]
  - Pruritus [None]
  - Chest discomfort [None]
  - Pain in extremity [None]
  - Swelling face [None]
  - Lip swelling [None]
  - Oral pain [None]

NARRATIVE: CASE EVENT DATE: 20201108
